FAERS Safety Report 4898892-5 (Version None)
Quarter: 2006Q1

REPORT INFORMATION
  Report Type: 
  Country: None (occurrence: None)
  Receive Date: 20060202
  Receipt Date: 20060118
  Transmission Date: 20060701
  Serious: Yes (Other)
  Sender: FDA-Public Use
  Company Number: HQ2720714JUN2002

PATIENT
  Sex: Female

DRUGS (1)
  1. ENBREL [Suspect]
     Indication: RHEUMATOID ARTHRITIS
     Route: 058
     Dates: start: 19991004

REACTIONS (3)
  - IMMUNE SYSTEM DISORDER [None]
  - INFECTION IN AN IMMUNOCOMPROMISED HOST [None]
  - RESPIRATORY TRACT INFECTION [None]
